FAERS Safety Report 7295303-X (Version None)
Quarter: 2011Q1

REPORT INFORMATION
  Report Type: 
  Country: None (occurrence: None)
  Receive Date: 20110216
  Receipt Date: 20110209
  Transmission Date: 20110831
  Serious: Yes (Death, Hospitalization)
  Sender: FDA-Public Use
  Company Number: BR-MEDIMMUNE-MEDI-0011597

PATIENT
  Sex: Male
  Weight: 6.3 kg

DRUGS (1)
  1. SYNAGIS [Suspect]
     Route: 030
     Dates: start: 20100301, end: 20100301

REACTIONS (3)
  - CARDIAC ARREST [None]
  - PNEUMONIA [None]
  - CRYING [None]
